FAERS Safety Report 16858879 (Version 1)
Quarter: 2019Q3

REPORT INFORMATION
  Report Type: Spontaneous
  Country: FR (occurrence: FR)
  Receive Date: 20190926
  Receipt Date: 20190926
  Transmission Date: 20191005
  Serious: Yes (Hospitalization)
  Sender: FDA-Public Use
  Company Number: FR-ALLERGAN-1938611US

PATIENT
  Sex: Male

DRUGS (1)
  1. OZURDEX [Suspect]
     Active Substance: DEXAMETHASONE
     Indication: MACULAR OEDEMA
     Dosage: 07 MG, SINGLE
     Route: 031
     Dates: start: 20190913, end: 20190913

REACTIONS (4)
  - Anterior chamber flare [Not Recovered/Not Resolved]
  - Off label use [Unknown]
  - Vitritis [Not Recovered/Not Resolved]
  - Conjunctival hyperaemia [Not Recovered/Not Resolved]

NARRATIVE: CASE EVENT DATE: 20190913
